FAERS Safety Report 8643694 (Version 2)
Quarter: 2013Q4

REPORT INFORMATION
  Report Type: Spontaneous
  Country: RU (occurrence: RU)
  Receive Date: 20120629
  Receipt Date: 20131010
  Transmission Date: 20140711
  Serious: Yes (Other)
  Sender: FDA-Public Use
  Company Number: RU-ROCHE-1082492

PATIENT
  Age: 47 Year
  Sex: Male

DRUGS (3)
  1. LUCENTIS [Suspect]
     Indication: PRODUCT USED FOR UNKNOWN INDICATION
     Route: 050
     Dates: start: 201201
  2. LUCENTIS [Suspect]
     Route: 050
     Dates: start: 201202
  3. LUCENTIS [Suspect]
     Route: 050
     Dates: start: 201212

REACTIONS (2)
  - Cataract [Recovered/Resolved]
  - Vitreous floaters [Recovered/Resolved]
